FAERS Safety Report 16641100 (Version 2)
Quarter: 2019Q3

REPORT INFORMATION
  Report Type: Spontaneous
  Country: US (occurrence: US)
  Receive Date: 20190729
  Receipt Date: 20190802
  Transmission Date: 20191004
  Serious: No
  Sender: FDA-Public Use
  Company Number: US-JNJFOC-20190725143

PATIENT
  Age: 19 Year
  Sex: Male
  Weight: 83.54 kg

DRUGS (1)
  1. TYLENOL EXTRA STRENGTH [Suspect]
     Active Substance: ACETAMINOPHEN
     Indication: BACK PAIN
     Route: 048
     Dates: start: 20190714, end: 20190714

REACTIONS (3)
  - Anxiety [Recovered/Resolved]
  - Dizziness [Recovering/Resolving]
  - Panic attack [Recovered/Resolved]

NARRATIVE: CASE EVENT DATE: 20190715
